FAERS Safety Report 21582085 (Version 2)
Quarter: 2024Q2

REPORT INFORMATION
  Report Type: Report from Study
  Country: US (occurrence: US)
  Receive Date: 20221111
  Receipt Date: 20240410
  Transmission Date: 20240715
  Serious: No
  Sender: FDA-Public Use
  Company Number: US-ABBVIE-22K-163-4505824-00

PATIENT
  Age: 72 Year
  Sex: Female

DRUGS (1)
  1. VENCLEXTA [Suspect]
     Active Substance: VENETOCLAX
     Indication: Chronic lymphocytic leukaemia
     Route: 048
     Dates: start: 20191226

REACTIONS (4)
  - Pain [Unknown]
  - Anxiety [Unknown]
  - Adverse drug reaction [Unknown]
  - Nausea [Unknown]

NARRATIVE: CASE EVENT DATE: 20220201
